FAERS Safety Report 4422505-X (Version None)
Quarter: 2004Q3

REPORT INFORMATION
  Report Type: 
  Country: None (occurrence: None)
  Receive Date: 20040810
  Receipt Date: 20040730
  Transmission Date: 20050211
  Serious: Yes (Hospitalization)
  Sender: FDA-Public Use
  Company Number: FR-BRISTOL-MYERS SQUIBB COMPANY-12656849

PATIENT
  Age: 87 Year
  Sex: Male

DRUGS (5)
  1. FUNGIZONE CAPS 250 MG [Suspect]
     Indication: ORAL CANDIDIASIS
     Route: 048
     Dates: start: 20040723
  2. AMLOR [Concomitant]
  3. ASPIRIN [Concomitant]
  4. VASTAREL [Concomitant]
  5. CORVASAL [Concomitant]

REACTIONS (2)
  - PURPURA [None]
  - THROMBOCYTOPENIA [None]
